FAERS Safety Report 16053361 (Version 3)
Quarter: 2019Q1

REPORT INFORMATION
  Report Type: Spontaneous
  Country: CA (occurrence: CA)
  Receive Date: 20190308
  Receipt Date: 20190308
  Transmission Date: 20190418
  Serious: Yes (Other)
  Sender: FDA-Public Use
  Company Number: PHHY2019CA049573

PATIENT
  Age: 38 Year
  Sex: Male

DRUGS (19)
  1. VANCOMYCIN [Suspect]
     Active Substance: VANCOMYCIN
     Indication: PSEUDOMONAS INFECTION
     Route: 047
  2. MOXIFLOXACIN. [Suspect]
     Active Substance: MOXIFLOXACIN
     Indication: ENDOPHTHALMITIS
     Route: 047
  3. TOBRAMYCIN. [Suspect]
     Active Substance: TOBRAMYCIN
     Indication: PSEUDOMONAS INFECTION
     Route: 042
  4. DEXAMETHASONE SODIUM PHOSPHATE. [Concomitant]
     Active Substance: DEXAMETHASONE SODIUM PHOSPHATE
     Indication: IRIDOCYCLITIS
     Route: 065
  5. VANCOMYCIN [Suspect]
     Active Substance: VANCOMYCIN
     Indication: ENDOPHTHALMITIS
  6. PREDNISONE. [Suspect]
     Active Substance: PREDNISONE
     Indication: UVEITIS
     Route: 065
  7. MYCOPHENOLATE MOFETIL. [Suspect]
     Active Substance: MYCOPHENOLATE MOFETIL
     Indication: IMMUNOSUPPRESSANT DRUG THERAPY
     Route: 065
  8. PIPERACILLIN AND TAZOBACTAM [Suspect]
     Active Substance: PIPERACILLIN SODIUM\TAZOBACTAM SODIUM
     Indication: ENDOPHTHALMITIS
     Route: 065
  9. MAXIDEX [Suspect]
     Active Substance: DEXAMETHASONE
     Indication: IRIDOCYCLITIS
     Route: 047
  10. LINEZOLID. [Suspect]
     Active Substance: LINEZOLID
     Indication: ENDOPHTHALMITIS
     Route: 042
  11. PREDNISOLONE SODIUM PHOSPHATE. [Suspect]
     Active Substance: PREDNISOLONE SODIUM PHOSPHATE
     Indication: IRIDOCYCLITIS
     Route: 047
  12. AMPHOTERICIN B. [Suspect]
     Active Substance: AMPHOTERICIN B
     Indication: ENDOPHTHALMITIS
     Route: 047
  13. HOMATROPINE HYDROBROMIDE. [Suspect]
     Active Substance: HOMATROPINE HYDROBROMIDE
     Indication: IRIDOCYCLITIS
     Dosage: 2 DF, QD
     Route: 047
  14. HOMATROPINE [Concomitant]
     Active Substance: HOMATROPINE\HOMATROPINE HYDROBROMIDE
     Indication: IRIDOCYCLITIS
     Dosage: 2 DF, QD
     Route: 065
  15. CIPROFLOXACIN. [Suspect]
     Active Substance: CIPROFLOXACIN
     Indication: ENDOPHTHALMITIS
     Route: 065
  16. CEFTAZIDIME. [Suspect]
     Active Substance: CEFTAZIDIME
     Indication: ENDOPHTHALMITIS
     Route: 047
  17. TACROLIMUS. [Suspect]
     Active Substance: TACROLIMUS
     Indication: IMMUNOSUPPRESSANT DRUG THERAPY
     Route: 065
  18. VORICONAZOLE. [Suspect]
     Active Substance: VORICONAZOLE
     Indication: ENDOPHTHALMITIS
     Route: 065
  19. PREDNISONE. [Suspect]
     Active Substance: PREDNISONE
     Indication: IMMUNOSUPPRESSANT DRUG THERAPY

REACTIONS (7)
  - Condition aggravated [Not Recovered/Not Resolved]
  - Visual acuity reduced [Not Recovered/Not Resolved]
  - Endophthalmitis [Not Recovered/Not Resolved]
  - Uveitis [Not Recovered/Not Resolved]
  - Intraocular pressure increased [Not Recovered/Not Resolved]
  - Eye pain [Not Recovered/Not Resolved]
  - Choroiditis [Not Recovered/Not Resolved]
